FAERS Safety Report 19479628 (Version 6)
Quarter: 2021Q3

REPORT INFORMATION
  Report Type: Report from Study
  Country: None (occurrence: US)
  Receive Date: 20210630
  Receipt Date: 20210824
  Transmission Date: 20211014
  Serious: Yes (Other)
  Sender: FDA-Public Use
  Company Number: US-ABBVIE-21K-163-3965648-00

PATIENT
  Sex: Female
  Weight: 102.15 kg

DRUGS (2)
  1. ORIAHNN [Suspect]
     Active Substance: ELAGOLIX SODIUM\ESTRADIOL\NORETHINDRONE
     Indication: PRODUCT USED FOR UNKNOWN INDICATION
     Dosage: 1 PILL IN THE MORNING AND 1 PILL IN THE EVENING FOR 28 DAYS UNINTERRUPTED
     Route: 048
     Dates: start: 20210610, end: 2021
  2. ORIAHNN [Suspect]
     Active Substance: ELAGOLIX SODIUM\ESTRADIOL\NORETHINDRONE
     Indication: PRODUCT USED FOR UNKNOWN INDICATION
     Dosage: 1 PILL IN THE MORNING AND 1 PILL IN THE EVENING FOR 28 DAYS UNINTERRUPTED
     Route: 048
     Dates: start: 20210610, end: 2021

REACTIONS (7)
  - Vulvovaginal discomfort [Not Recovered/Not Resolved]
  - Heavy menstrual bleeding [Not Recovered/Not Resolved]
  - Blood iron decreased [Not Recovered/Not Resolved]
  - Intermenstrual bleeding [Not Recovered/Not Resolved]
  - Anaemia [Unknown]
  - Mass [Unknown]
  - Nausea [Not Recovered/Not Resolved]

NARRATIVE: CASE EVENT DATE: 2021
